FAERS Safety Report 25062482 (Version 1)
Quarter: 2025Q1

REPORT INFORMATION
  Report Type: Spontaneous
  Country: US (occurrence: US)
  Receive Date: 20250311
  Receipt Date: 20250311
  Transmission Date: 20250409
  Serious: No
  Sender: LEADING PHARMA
  Company Number: US-LEADINGPHARMA-US-2025LEASPO00039

PATIENT

DRUGS (1)
  1. HYDROCHLOROTHIAZIDE [Suspect]
     Active Substance: HYDROCHLOROTHIAZIDE
     Indication: Cardiac failure
     Route: 065

REACTIONS (1)
  - Dizziness [Unknown]
